FAERS Safety Report 10446610 (Version 1)
Quarter: 2014Q3

REPORT INFORMATION
  Report Type: Spontaneous
  Country: US (occurrence: None)
  Receive Date: 20140910
  Receipt Date: 20140910
  Transmission Date: 20150326
  Serious: Yes (Life-Threatening, Hospitalization, Disabling)
  Sender: FDA-Public Use
  Company Number: None

PATIENT
  Age: 29 Year
  Sex: Male
  Weight: 90.72 kg

DRUGS (1)
  1. VIMPAT [Suspect]
     Active Substance: LACOSAMIDE
     Indication: CONVULSION
     Dosage: 2, TWICE DAILY, TAKEN BY MOUTH
     Route: 048

REACTIONS (4)
  - Convulsion [None]
  - Condition aggravated [None]
  - Impaired work ability [None]
  - Impaired driving ability [None]
